FAERS Safety Report 9660127 (Version 3)
Quarter: 2013Q4

REPORT INFORMATION
  Report Type: Spontaneous
  Country: JP (occurrence: JP)
  Receive Date: 20131031
  Receipt Date: 20131217
  Transmission Date: 20140711
  Serious: Yes (Other)
  Sender: FDA-Public Use
  Company Number: JP-JNJFOC-20131016451

PATIENT
  Age: 38 Year
  Sex: Male

DRUGS (3)
  1. TOPIRAMATE [Suspect]
     Indication: EPILEPSY
     Route: 048
     Dates: start: 200906
  2. CARBAMAZEPINE [Suspect]
     Indication: PUTAMEN HAEMORRHAGE
     Route: 065
  3. GABAPENTIN [Suspect]
     Indication: PUTAMEN HAEMORRHAGE
     Route: 065

REACTIONS (3)
  - Hemiparesis [Recovering/Resolving]
  - Dyslalia [Recovering/Resolving]
  - Anhidrosis [Recovered/Resolved]
